FAERS Safety Report 9184044 (Version 1)
Quarter: 2012Q4

REPORT INFORMATION
  Report Type: 
  Country: US (occurrence: US)
  Receive Date: 20121030
  Receipt Date: 20121030
  Transmission Date: 20130627
  Serious: Yes (Other)
  Sender: FDA-Public Use
  Company Number: US-JNJFOC-20121014818

PATIENT
  Sex: Male
  Weight: 88.45 kg

DRUGS (3)
  1. ZYTIGA [Suspect]
     Indication: PROSTATE CANCER
     Route: 048
     Dates: start: 201105
  2. PREDNISONE [Concomitant]
     Indication: PROSTATE CANCER
     Route: 048
     Dates: start: 201105
  3. TOPROL [Concomitant]
     Indication: ARRHYTHMIA
     Route: 048

REACTIONS (1)
  - Confusional state [Not Recovered/Not Resolved]
